FAERS Safety Report 15703038 (Version 1)
Quarter: 2018Q4

REPORT INFORMATION
  Report Type: Spontaneous
  Country: US (occurrence: US)
  Receive Date: 20181208
  Receipt Date: 20181208
  Transmission Date: 20190205
  Serious: Yes (Hospitalization)
  Sender: FDA-Public Use
  Company Number: None

PATIENT
  Age: 8 Year
  Sex: Male
  Weight: 40.5 kg

DRUGS (2)
  1. ACETAMINOPHEN LIQUID [Suspect]
     Active Substance: ACETAMINOPHEN
     Indication: PAIN
     Dosage: ?          OTHER FREQUENCY:ONE TIME DOSE;?
     Route: 048
     Dates: start: 20181203, end: 20181203
  2. ACETAMINOPHEN LIQUID [Suspect]
     Active Substance: ACETAMINOPHEN
     Indication: PYREXIA
     Dosage: ?          OTHER FREQUENCY:ONE TIME DOSE;?
     Route: 048
     Dates: start: 20181203, end: 20181203

REACTIONS (2)
  - Loss of consciousness [None]
  - Feeling abnormal [None]

NARRATIVE: CASE EVENT DATE: 20181203
